FAERS Safety Report 11378904 (Version 1)
Quarter: 2015Q3

REPORT INFORMATION
  Report Type: Spontaneous
  Country: US (occurrence: US)
  Receive Date: 20150811
  Receipt Date: 20150811
  Transmission Date: 20151125
  Serious: No
  Sender: FDA-Public Use
  Company Number: US-ELI_LILLY_AND_COMPANY-US200802006409

PATIENT
  Age: 50 Year
  Sex: Male

DRUGS (2)
  1. SINEMET [Concomitant]
     Active Substance: CARBIDOPA\LEVODOPA
     Indication: PARKINSON^S DISEASE
  2. CIALIS [Suspect]
     Active Substance: TADALAFIL
     Indication: ERECTILE DYSFUNCTION
     Dosage: 10 MG, DAILY (1/D)
     Dates: start: 20080226

REACTIONS (2)
  - Male orgasmic disorder [Recovered/Resolved]
  - Ejaculation delayed [Recovered/Resolved]

NARRATIVE: CASE EVENT DATE: 20080226
